FAERS Safety Report 8048565-5 (Version None)
Quarter: 2012Q1

REPORT INFORMATION
  Report Type: 
  Country: None (occurrence: None)
  Receive Date: 20120113
  Receipt Date: 20120113
  Transmission Date: 20120608
  Serious: Yes (Hospitalization)
  Sender: FDA-Public Use
  Company Number: None

PATIENT
  Sex: Female
  Weight: 83.5 kg

DRUGS (2)
  1. RITUXIMAB 375 MG/M2 GENENTECH [Suspect]
     Dosage: 700-730 MG DAY 1 IV
     Route: 042
     Dates: start: 20101021, end: 20110317
  2. BENDAMUSTINE 90 MG/M2 CEPHALON [Suspect]
     Indication: LYMPHOMA
     Dosage: 168-175 MG DAY 1 AND 2 IV
     Route: 042
     Dates: start: 20101028, end: 20110121

REACTIONS (4)
  - LEUKOCYTOSIS [None]
  - HERPES ZOSTER [None]
  - MENTAL STATUS CHANGES [None]
  - SUPERINFECTION [None]
